FAERS Safety Report 22647729 (Version 2)
Quarter: 2025Q2

REPORT INFORMATION
  Report Type: Spontaneous
  Country: DK (occurrence: DK)
  Receive Date: 20230628
  Receipt Date: 20250515
  Transmission Date: 20250716
  Serious: Yes (Death, Congenital Anomaly, Other)
  Sender: UCB
  Company Number: None

PATIENT

DRUGS (2)
  1. CIMZIA [Suspect]
     Active Substance: CERTOLIZUMAB PEGOL
     Indication: Arthritis
     Dosage: DOSE PRIOR TO 28FEB2023 NOT TAKEN CONSISTENTLY, TAKEN 28FEB+POSSIBLY 14MAR2023STRENGTH: 200 MG
     Route: 064
     Dates: start: 20210609, end: 2023
  2. CIMZIA [Suspect]
     Active Substance: CERTOLIZUMAB PEGOL
     Indication: Spondyloarthropathy

REACTIONS (2)
  - Ventricular septal defect [Fatal]
  - Maternal exposure during pregnancy [Unknown]

NARRATIVE: CASE EVENT DATE: 20230607
